FAERS Safety Report 12940964 (Version 1)
Quarter: 2016Q4

REPORT INFORMATION
  Report Type: Report from Study
  Country: ZA (occurrence: ZA)
  Receive Date: 20161115
  Receipt Date: 20161115
  Transmission Date: 20170207
  Serious: Yes (Other)
  Sender: FDA-Public Use
  Company Number: PHHY2016ZA155289

PATIENT
  Age: 54 Year
  Sex: Female

DRUGS (2)
  1. ACLASTA [Suspect]
     Active Substance: ZOLEDRONIC ACID
     Indication: OSTEOPOROSIS
     Dosage: 1 DF (5 MG/ 100 ML), Q12MO
     Route: 041
     Dates: start: 201411, end: 201411
  2. ACLASTA [Suspect]
     Active Substance: ZOLEDRONIC ACID
     Dosage: 1 DF (5 MG/ 100 ML), Q12MO
     Route: 041
     Dates: start: 2015

REACTIONS (7)
  - Pain [Unknown]
  - Nail injury [Unknown]
  - Breast cancer recurrent [Unknown]
  - Contusion [Unknown]
  - Metastases to central nervous system [Unknown]
  - Metastases to lung [Unknown]
  - Fall [Unknown]

NARRATIVE: CASE EVENT DATE: 201503
